FAERS Safety Report 10061296 (Version 1)
Quarter: 2014Q2

REPORT INFORMATION
  Report Type: Spontaneous
  Country: US (occurrence: US)
  Receive Date: 20140407
  Receipt Date: 20140407
  Transmission Date: 20141212
  Serious: Yes (Other)
  Sender: FDA-Public Use
  Company Number: US-BRISTOL-MYERS SQUIBB COMPANY-20577029

PATIENT
  Age: 8 Month
  Sex: 0

DRUGS (1)
  1. ABILIFY [Suspect]

REACTIONS (2)
  - Foetal exposure during pregnancy [Unknown]
  - Gross motor delay [Unknown]
